FAERS Safety Report 9985401 (Version 2)
Quarter: 2014Q1

REPORT INFORMATION
  Report Type: Report from Study
  Country: NL (occurrence: NL)
  Receive Date: 20140307
  Receipt Date: 20140307
  Transmission Date: 20141002
  Serious: Yes (Death, Hospitalization)
  Sender: FDA-Public Use
  Company Number: NL-CELGENEUS-114-21660-14020797

PATIENT
  Age: 72 Year
  Sex: Female

DRUGS (8)
  1. ABRAXANE [Suspect]
     Indication: PANCREATIC CARCINOMA
     Route: 058
     Dates: start: 20131217, end: 20140114
  2. ABRAXANE [Suspect]
     Route: 058
     Dates: end: 20140123
  3. GEMCITABINE [Suspect]
     Indication: PANCREATIC CARCINOMA
     Route: 058
  4. FENTANYL [Concomitant]
     Indication: PAIN
     Route: 065
  5. OXYNORM [Concomitant]
     Indication: PAIN
     Route: 048
  6. FUROSEMIDE [Concomitant]
     Indication: OEDEMA
     Route: 048
     Dates: start: 20140202
  7. ESOMEPRAZOLE [Concomitant]
     Indication: PAIN
     Route: 048
  8. METOCLOPRAMIDE [Concomitant]
     Indication: NAUSEA
     Route: 048

REACTIONS (2)
  - Pancreatic carcinoma [Fatal]
  - Blood bilirubin increased [Not Recovered/Not Resolved]
